FAERS Safety Report 4968181-9 (Version None)
Quarter: 2006Q2

REPORT INFORMATION
  Report Type: 
  Country: None (occurrence: None)
  Receive Date: 20060410
  Receipt Date: 20060331
  Transmission Date: 20061013
  Serious: Yes (Other)
  Sender: FDA-Public Use
  Company Number: ES-GILEAD-2006-0009408

PATIENT
  Sex: Male

DRUGS (3)
  1. VIREAD [Suspect]
     Indication: HIV INFECTION
  2. 3TC [Concomitant]
  3. KALETRA [Concomitant]

REACTIONS (2)
  - OSTEOMALACIA [None]
  - RENAL DISORDER [None]
